FAERS Safety Report 4374027-2 (Version None)
Quarter: 2004Q2

REPORT INFORMATION
  Report Type: 
  Country: None (occurrence: None)
  Receive Date: 20040607
  Receipt Date: 20040526
  Transmission Date: 20050107
  Serious: Yes (Other)
  Sender: FDA-Public Use
  Company Number: PHEH2004US05895

PATIENT
  Age: 69 Year
  Sex: Female
  Weight: 68 kg

DRUGS (2)
  1. LOTREL [Suspect]
     Indication: HYPERTENSION
     Dates: start: 20040505, end: 20040525
  2. PREMPRO [Concomitant]

REACTIONS (2)
  - DIARRHOEA [None]
  - HENOCH-SCHONLEIN PURPURA [None]
